FAERS Safety Report 14780877 (Version 1)
Quarter: 2018Q2

REPORT INFORMATION
  Report Type: Spontaneous
  Country: US (occurrence: US)
  Receive Date: 20180419
  Receipt Date: 20180419
  Transmission Date: 20180711
  Serious: Yes (Hospitalization, Other)
  Sender: FDA-Public Use
  Company Number: US-GLAXOSMITHKLINE-US2018067103

PATIENT
  Age: 63 Year
  Sex: Male

DRUGS (2)
  1. VENTOLIN HFA [Suspect]
     Active Substance: ALBUTEROL SULFATE
     Indication: CHRONIC OBSTRUCTIVE PULMONARY DISEASE
     Dosage: 2 PUFF(S), UNK
     Route: 055
     Dates: start: 2013
  2. ASPIRIN (BABY) [Concomitant]
     Active Substance: ASPIRIN

REACTIONS (3)
  - Balance disorder [Recovering/Resolving]
  - Ill-defined disorder [Unknown]
  - Cerebellar stroke [Recovering/Resolving]

NARRATIVE: CASE EVENT DATE: 20171220
